FAERS Safety Report 9128917 (Version 1)
Quarter: 2013Q1

REPORT INFORMATION
  Report Type: Spontaneous
  Country: US (occurrence: US)
  Receive Date: 20130125
  Receipt Date: 20130125
  Transmission Date: 20140127
  Serious: Yes (Other)
  Sender: FDA-Public Use
  Company Number: US-009507513-1201USA04193

PATIENT
  Age: 83 Year
  Sex: Female
  Weight: 48.81 kg

DRUGS (3)
  1. SINGULAIR [Suspect]
     Indication: ASTHMA
     Dosage: 10 MG, QD
     Route: 048
     Dates: start: 20070101, end: 20100714
  2. SINGULAIR [Suspect]
     Indication: MULTIPLE ALLERGIES
  3. SYMBICORT [Suspect]

REACTIONS (4)
  - Withdrawal syndrome [Unknown]
  - Diarrhoea [Unknown]
  - Nausea [Unknown]
  - Vomiting [Unknown]
